FAERS Safety Report 5339814-2 (Version None)
Quarter: 2007Q2

REPORT INFORMATION
  Report Type: 
  Country: None (occurrence: None)
  Receive Date: 20070531
  Receipt Date: 20070522
  Transmission Date: 20071010
  Serious: Yes (Other)
  Sender: FDA-Public Use
  Company Number: CA-JNJFOC-20070505831

PATIENT
  Sex: Male

DRUGS (3)
  1. EXTRA STRENGTH TYLENOL [Suspect]
     Route: 048
  2. EXTRA STRENGTH TYLENOL [Suspect]
     Indication: PAIN
     Dosage: EVERY 2-4 HOURS FOR ABOUT 6 MONTHS UNDER DOCTOR'S SUPERVISION
     Route: 048
  3. UNSPECIFIED ANTIBIOTICS [Concomitant]

REACTIONS (2)
  - DEAFNESS [None]
  - INCORRECT DRUG ADMINISTRATION DURATION [None]
